FAERS Safety Report 4733047-6 (Version None)
Quarter: 2005Q3

REPORT INFORMATION
  Report Type: 
  Country: None (occurrence: None)
  Receive Date: 20050801
  Receipt Date: 20050721
  Transmission Date: 20060218
  Serious: Yes (Hospitalization)
  Sender: FDA-Public Use
  Company Number: RS005353-J

PATIENT
  Age: 73 Year
  Sex: Male
  Weight: 55 kg

DRUGS (6)
  1. RABEPRAZOLE SODIUM [Suspect]
     Indication: GASTRIC MUCOSAL LESION
     Dosage: 20 MG, 1 IN 1 D, ORAL
     Route: 048
     Dates: start: 20050210, end: 20050516
  2. SAIBOKU-TO (SAIBOKU-TO) [Suspect]
     Indication: COUGH
     Dosage: ORAL
     Route: 048
     Dates: start: 20050420, end: 20050516
  3. ACTOS [Suspect]
     Indication: INSULIN RESISTANT DIABETES
     Dosage: 15 MG, 1 IN 1 D, ORAL
     Route: 048
     Dates: start: 20050404, end: 20050516
  4. MEILAX (ETHYL LOFLAZEPATE) [Suspect]
     Indication: SEDATION
     Dosage: 1 MG, 1 IN 1 D, ORAL
     Route: 048
     Dates: start: 20050420, end: 20050516
  5. CODEINE PHOSPHATE (CODEINE PHOSPHATE) [Suspect]
     Indication: COUGH
     Dosage: 4.5 GM, 1 IN 1 D, ORAL
     Route: 048
     Dates: start: 20050420, end: 20050516
  6. KIPRES (MONTELUKAST SODIUM) [Suspect]
     Indication: ANTIALLERGIC THERAPY
     Dosage: ORAL
     Route: 048
     Dates: start: 20050324, end: 20050516

REACTIONS (6)
  - ASTHENIA [None]
  - BODY TEMPERATURE INCREASED [None]
  - CHEST X-RAY ABNORMAL [None]
  - CRACKLES LUNG [None]
  - FALL [None]
  - HYPOXIA [None]
